FAERS Safety Report 6700739-9 (Version None)
Quarter: 2010Q2

REPORT INFORMATION
  Report Type: 
  Country: None (occurrence: None)
  Receive Date: 20100426
  Receipt Date: 20100414
  Transmission Date: 20101027
  Serious: Yes (Death)
  Sender: FDA-Public Use
  Company Number: 2009-03388

PATIENT
  Age: 73 Year
  Sex: Male
  Weight: 64 kg

DRUGS (9)
  1. VELCADE [Suspect]
     Indication: MULTIPLE MYELOMA
     Dosage: 2 MG, INTRAVENOUS
     Route: 042
     Dates: start: 20090727, end: 20090730
  2. ZOMETA [Suspect]
     Indication: HYPERCALCAEMIA
     Dosage: 4 MG, INTRAVENOUS
     Route: 042
     Dates: start: 20090730, end: 20090730
  3. PEGINTERFERON (PEGINTERFERON) [Suspect]
  4. DEXAMATHESONE (DEXAMETHASONE) [Concomitant]
  5. LAMAR (TEGAFUR) [Concomitant]
  6. FAMOTIDINE [Concomitant]
  7. ALLOPURINOL [Concomitant]
  8. MUCODYNE (CARBOCISTEINE) [Concomitant]
  9. MAGNESIUM OXIDE (MAGNESIUM OXIDE) [Concomitant]

REACTIONS (4)
  - CARDIAC ARREST [None]
  - PNEUMONIA ASPIRATION [None]
  - RESPIRATORY ARREST [None]
  - VOMITING [None]
